FAERS Safety Report 9306395 (Version 2)
Quarter: 2013Q2

REPORT INFORMATION
  Report Type: Spontaneous
  Country: CN (occurrence: CN)
  Receive Date: 20130523
  Receipt Date: 20130528
  Transmission Date: 20140414
  Serious: Yes (Life-Threatening, Hospitalization)
  Sender: FDA-Public Use
  Company Number: CN-SANOFI-AVENTIS-2013SA049015

PATIENT
  Age: 81 Year
  Sex: Male
  Weight: 76 kg

DRUGS (4)
  1. PLAVIX [Suspect]
     Indication: PRODUCT USED FOR UNKNOWN INDICATION
     Route: 048
     Dates: start: 2004
  2. ASPIRIN [Concomitant]
     Route: 048
     Dates: start: 2004, end: 201304
  3. TICAGRELOR [Concomitant]
     Route: 048
     Dates: start: 201304, end: 20130502
  4. PLETAAL [Concomitant]
     Route: 065
     Dates: start: 20130503

REACTIONS (1)
  - Platelet count decreased [Not Recovered/Not Resolved]
